FAERS Safety Report 7383142-0 (Version None)
Quarter: 2011Q1

REPORT INFORMATION
  Report Type: 
  Country: None (occurrence: None)
  Receive Date: 20110325
  Receipt Date: 20110325
  Transmission Date: 20110831
  Serious: No
  Sender: FDA-Public Use
  Company Number: None

PATIENT
  Age: 34 Year
  Sex: Female
  Weight: 66.2252 kg

DRUGS (1)
  1. VALACYCLOVIR [Suspect]
     Indication: HERPES VIRUS INFECTION
     Dosage: 500MG 1-2XDAY BY MOUTH
     Route: 048
     Dates: start: 20060101

REACTIONS (1)
  - NO THERAPEUTIC RESPONSE [None]
